FAERS Safety Report 5566394-9 (Version None)
Quarter: 2007Q4

REPORT INFORMATION
  Report Type: 
  Country: None (occurrence: None)
  Receive Date: 20071219
  Receipt Date: 20071206
  Transmission Date: 20080405
  Serious: Yes (Other)
  Sender: FDA-Public Use
  Company Number: NO-AMGEN-US257255

PATIENT
  Sex: Male

DRUGS (7)
  1. ENBREL [Suspect]
     Indication: ANKYLOSING SPONDYLITIS
     Route: 058
     Dates: start: 20050621
  2. TELFAST [Concomitant]
     Indication: HYPERSENSITIVITY
  3. ATARAX [Concomitant]
     Indication: ANXIETY
  4. LANZO MELT [Concomitant]
     Indication: GASTRITIS
  5. GLUCOPHAGE [Concomitant]
     Indication: DIABETES MELLITUS
  6. SINGULAIR [Concomitant]
     Indication: CHRONIC OBSTRUCTIVE PULMONARY DISEASE
  7. TRAMADOL HCL [Concomitant]
     Indication: PAIN

REACTIONS (1)
  - SALIVARY GLAND NEOPLASM [None]
